FAERS Safety Report 19423933 (Version 1)
Quarter: 2021Q2

REPORT INFORMATION
  Report Type: Spontaneous
  Country: JP (occurrence: JP)
  Receive Date: 20210616
  Receipt Date: 20210616
  Transmission Date: 20210717
  Serious: Yes (Other)
  Sender: FDA-Public Use
  Company Number: JP-PFIZER INC-2021638656

PATIENT
  Age: 72 Year
  Sex: Male

DRUGS (1)
  1. LIPITOR [Suspect]
     Active Substance: ATORVASTATIN CALCIUM
     Dosage: UNK

REACTIONS (6)
  - Drug eruption [Unknown]
  - Lymphocyte stimulation test positive [Unknown]
  - Pyrexia [Unknown]
  - Eosinophil count increased [Unknown]
  - Erythema multiforme [Recovered/Resolved]
  - Liver disorder [Unknown]
